FAERS Safety Report 23980181 (Version 2)
Quarter: 2024Q3

REPORT INFORMATION
  Report Type: Spontaneous
  Country: CA (occurrence: CA)
  Receive Date: 20240617
  Receipt Date: 20240930
  Transmission Date: 20241017
  Serious: Yes (Death, Life-Threatening, Hospitalization, Disabling, Other)
  Sender: Haleon PLC
  Company Number: CA-HALEON-CACH2023AMR057057

PATIENT
  Age: 48 Year
  Sex: Female
  Weight: 68 kg

DRUGS (273)
  1. DICLOFENAC POTASSIUM [Suspect]
     Active Substance: DICLOFENAC POTASSIUM
     Indication: Product used for unknown indication
     Dosage: UNK
     Route: 058
  2. DIPHENHYDRAMINE HYDROCHLORIDE [Suspect]
     Active Substance: DIPHENHYDRAMINE HYDROCHLORIDE
     Indication: Product used for unknown indication
     Route: 065
  3. CERTOLIZUMAB PEGOL [Suspect]
     Active Substance: CERTOLIZUMAB PEGOL
     Indication: Rheumatoid arthritis
     Dosage: 400.0 MG
     Route: 064
  4. CERTOLIZUMAB PEGOL [Suspect]
     Active Substance: CERTOLIZUMAB PEGOL
     Indication: Product used for unknown indication
     Dosage: 400.0 MG
     Route: 058
  5. OTEZLA [Suspect]
     Active Substance: APREMILAST
     Indication: Product used for unknown indication
     Dosage: 3.0 MG, BID
     Route: 048
  6. OTEZLA [Suspect]
     Active Substance: APREMILAST
     Dosage: 3 MG, BID
     Route: 048
  7. STELARA [Suspect]
     Active Substance: USTEKINUMAB
     Indication: Rheumatoid arthritis
     Dosage: UNK
     Route: 058
  8. STELARA [Suspect]
     Active Substance: USTEKINUMAB
     Dosage: UNK
     Route: 065
  9. STELARA [Suspect]
     Active Substance: USTEKINUMAB
     Dosage: UNK
     Route: 058
  10. STELARA [Suspect]
     Active Substance: USTEKINUMAB
     Dosage: UNK
     Route: 064
  11. STELARA [Suspect]
     Active Substance: USTEKINUMAB
     Dosage: 45.0 MG
     Route: 065
  12. CETIRIZINE HYDROCHLORIDE [Suspect]
     Active Substance: CETIRIZINE HYDROCHLORIDE
     Indication: Off label use
     Dosage: 250 MG
     Route: 048
  13. CETIRIZINE HYDROCHLORIDE [Suspect]
     Active Substance: CETIRIZINE HYDROCHLORIDE
     Indication: Rheumatoid arthritis
     Dosage: 250 MG
     Route: 065
  14. CETIRIZINE HYDROCHLORIDE [Suspect]
     Active Substance: CETIRIZINE HYDROCHLORIDE
     Indication: Product used for unknown indication
     Dosage: 10.0 MG
     Route: 048
  15. CETIRIZINE HYDROCHLORIDE [Suspect]
     Active Substance: CETIRIZINE HYDROCHLORIDE
     Dosage: UNK
     Route: 067
  16. CETIRIZINE HYDROCHLORIDE [Suspect]
     Active Substance: CETIRIZINE HYDROCHLORIDE
     Dosage: UNK
     Route: 064
  17. CETIRIZINE HYDROCHLORIDE [Suspect]
     Active Substance: CETIRIZINE HYDROCHLORIDE
     Dosage: 10 MG
     Route: 048
  18. CETIRIZINE HYDROCHLORIDE [Suspect]
     Active Substance: CETIRIZINE HYDROCHLORIDE
     Dosage: 25 MG
     Route: 048
  19. CETIRIZINE HYDROCHLORIDE [Suspect]
     Active Substance: CETIRIZINE HYDROCHLORIDE
     Dosage: UNK
     Route: 065
  20. CETIRIZINE HYDROCHLORIDE [Suspect]
     Active Substance: CETIRIZINE HYDROCHLORIDE
     Route: 048
  21. ARAVA [Suspect]
     Active Substance: LEFLUNOMIDE
     Indication: Rheumatoid arthritis
     Dosage: UNK
     Route: 005
  22. ARAVA [Suspect]
     Active Substance: LEFLUNOMIDE
     Dosage: 10.0 MG, QD
     Route: 048
  23. ARAVA [Suspect]
     Active Substance: LEFLUNOMIDE
     Dosage: 20.0 MG
     Route: 048
  24. ARAVA [Suspect]
     Active Substance: LEFLUNOMIDE
     Dosage: 1.0 MG, QD
     Route: 065
  25. XELJANZ [Concomitant]
     Active Substance: TOFACITINIB CITRATE
     Indication: Product used for unknown indication
     Dosage: UNK
     Route: 065
  26. XELJANZ [Concomitant]
     Active Substance: TOFACITINIB CITRATE
     Indication: Rheumatoid arthritis
  27. FOSAMAX [Suspect]
     Active Substance: ALENDRONATE SODIUM
     Indication: Rheumatoid arthritis
     Dosage: UNK
     Route: 064
  28. FOSAMAX [Suspect]
     Active Substance: ALENDRONATE SODIUM
     Indication: Product used for unknown indication
     Dosage: UNK
     Route: 016
  29. FOSAMAX [Suspect]
     Active Substance: ALENDRONATE SODIUM
     Dosage: 1 MG
     Route: 048
  30. FOSAMAX [Suspect]
     Active Substance: ALENDRONATE SODIUM
     Dosage: 40.0 MG
     Route: 058
  31. PANTOPRAZOLE SODIUM [Suspect]
     Active Substance: PANTOPRAZOLE SODIUM
     Indication: Dyspepsia
     Dosage: UNK
     Route: 048
  32. ALENDRONIC ACID [Suspect]
     Active Substance: ALENDRONIC ACID
     Indication: Rheumatoid arthritis
     Dosage: UNK
     Route: 016
  33. ALENDRONIC ACID [Suspect]
     Active Substance: ALENDRONIC ACID
     Dosage: 20.0 MG
     Route: 048
  34. HUMIRA [Suspect]
     Active Substance: ADALIMUMAB
     Indication: Product used for unknown indication
     Dosage: 4.0 MG
     Route: 058
  35. HUMIRA [Suspect]
     Active Substance: ADALIMUMAB
     Indication: Rheumatoid arthritis
     Dosage: 4 MG
     Route: 064
  36. HUMIRA [Suspect]
     Active Substance: ADALIMUMAB
     Indication: Psoriatic arthropathy
     Dosage: 400.0 MG
     Route: 064
  37. HUMIRA [Suspect]
     Active Substance: ADALIMUMAB
     Dosage: 1.0 MG
     Route: 058
  38. HUMIRA [Suspect]
     Active Substance: ADALIMUMAB
     Dosage: 40.0 MG
     Route: 058
  39. HUMIRA [Suspect]
     Active Substance: ADALIMUMAB
     Dosage: 40.0 MG
     Route: 064
  40. HUMIRA [Suspect]
     Active Substance: ADALIMUMAB
     Dosage: 400.0 MG, QD
     Route: 058
  41. RITUXIMAB [Suspect]
     Active Substance: RITUXIMAB
     Indication: Product used for unknown indication
     Dosage: UNK
     Route: 042
  42. RITUXIMAB [Suspect]
     Active Substance: RITUXIMAB
     Indication: Rheumatoid arthritis
     Dosage: UNK
     Route: 064
  43. RITUXIMAB [Suspect]
     Active Substance: RITUXIMAB
     Dosage: UNK (NOT OTHERWISE SPECIFIED)
     Route: 042
  44. RITUXIMAB [Suspect]
     Active Substance: RITUXIMAB
     Dosage: UNK
     Route: 058
  45. PANADOL [Suspect]
     Active Substance: ACETAMINOPHEN
     Indication: Product used for unknown indication
     Dosage: 10 MG
     Route: 065
  46. METHOTREXATE [Suspect]
     Active Substance: METHOTREXATE
     Indication: Product used for unknown indication
     Dosage: 225.0 MG
     Route: 065
  47. METHOTREXATE [Suspect]
     Active Substance: METHOTREXATE
     Indication: Rheumatoid arthritis
     Dosage: 25.0 MG, WE
     Route: 058
  48. METHOTREXATE [Suspect]
     Active Substance: METHOTREXATE
     Dosage: 1.0 MG,1 EVERY 1 DAYS
     Route: 065
  49. METHOTREXATE [Suspect]
     Active Substance: METHOTREXATE
     Dosage: UNK(NOT OTHERWISE SPECIFIED),1 EVERY 1 DAYS
     Route: 042
  50. METHOTREXATE [Suspect]
     Active Substance: METHOTREXATE
     Dosage: 25.0 MG, WE
     Route: 013
  51. METHOTREXATE [Suspect]
     Active Substance: METHOTREXATE
     Dosage: 25.0 MG, QD
     Route: 042
  52. METHOTREXATE [Suspect]
     Active Substance: METHOTREXATE
     Dosage: 25 MG, QD
     Route: 058
  53. METHOTREXATE [Suspect]
     Active Substance: METHOTREXATE
     Dosage: UNK
     Route: 058
  54. METHOTREXATE [Suspect]
     Active Substance: METHOTREXATE
     Dosage: 20.0 MG
     Route: 048
  55. METHOTREXATE [Suspect]
     Active Substance: METHOTREXATE
     Dosage: 15 MG, QD
     Route: 065
  56. METHOTREXATE [Suspect]
     Active Substance: METHOTREXATE
     Dosage: 2.0 MG, QD
     Route: 065
  57. METHOTREXATE [Suspect]
     Active Substance: METHOTREXATE
     Dosage: 500.0 MG, BID
     Route: 048
  58. METHOTREXATE [Suspect]
     Active Substance: METHOTREXATE
     Dosage: 20 MG, WE
     Route: 013
  59. METHOTREXATE [Suspect]
     Active Substance: METHOTREXATE
     Dosage: 20 MG, QW
     Route: 065
  60. METHOTREXATE [Suspect]
     Active Substance: METHOTREXATE
     Dosage: 20 MG
     Route: 048
  61. METHOTREXATE [Suspect]
     Active Substance: METHOTREXATE
     Dosage: 25.0 MG
     Route: 064
  62. METHOTREXATE [Suspect]
     Active Substance: METHOTREXATE
     Dosage: 20 MG, QD
     Route: 064
  63. METHOTREXATE [Suspect]
     Active Substance: METHOTREXATE
     Dosage: 500 MG, BID
     Route: 048
  64. METHOTREXATE [Suspect]
     Active Substance: METHOTREXATE
     Dosage: 25 MG, QD
     Route: 013
  65. METHOTREXATE [Suspect]
     Active Substance: METHOTREXATE
     Dosage: 2 DOSAGE FORM, QD
     Route: 065
  66. METHOTREXATE [Suspect]
     Active Substance: METHOTREXATE
     Dosage: 20.0 MG
     Route: 064
  67. METHOTREXATE [Suspect]
     Active Substance: METHOTREXATE
     Dosage: 25.0 MG
     Route: 013
  68. METHOTREXATE [Suspect]
     Active Substance: METHOTREXATE
     Dosage: 225.0 MG
     Route: 048
  69. METHOTREXATE [Suspect]
     Active Substance: METHOTREXATE
     Dosage: 40.0 MG
     Route: 058
  70. METHOTREXATE [Suspect]
     Active Substance: METHOTREXATE
     Dosage: 25.0 MG
     Route: 048
  71. METHOTREXATE [Suspect]
     Active Substance: METHOTREXATE
     Dosage: 40 MG
     Route: 065
  72. METHOTREXATE [Suspect]
     Active Substance: METHOTREXATE
     Dosage: 25.0 MG, WE
     Route: 048
  73. METHOTREXATE [Suspect]
     Active Substance: METHOTREXATE
     Dosage: 25 MG, QD
     Route: 048
  74. METHOTREXATE [Suspect]
     Active Substance: METHOTREXATE
     Dosage: 40 MG
     Route: 048
  75. METHOTREXATE [Suspect]
     Active Substance: METHOTREXATE
     Route: 065
  76. ENBREL [Suspect]
     Active Substance: ETANERCEPT
     Indication: Rheumatoid arthritis
     Dosage: 1 DF, QD
     Route: 058
  77. ENBREL [Suspect]
     Active Substance: ETANERCEPT
     Indication: Product used for unknown indication
     Dosage: 50 MG
     Route: 058
  78. ENBREL [Suspect]
     Active Substance: ETANERCEPT
     Dosage: 50 MG, QD
     Route: 064
  79. ENBREL [Suspect]
     Active Substance: ETANERCEPT
     Dosage: UNK
     Route: 064
  80. ENBREL [Suspect]
     Active Substance: ETANERCEPT
     Dosage: 20.0 MG
     Route: 058
  81. ENBREL [Suspect]
     Active Substance: ETANERCEPT
     Dosage: 50.0 MG
     Route: 058
  82. ENBREL [Suspect]
     Active Substance: ETANERCEPT
     Dosage: UNK
     Route: 058
  83. ENBREL [Suspect]
     Active Substance: ETANERCEPT
     Dosage: 50 MG
     Route: 058
  84. SIMPONI [Suspect]
     Active Substance: GOLIMUMAB
     Indication: Product used for unknown indication
     Dosage: UNK
     Route: 064
  85. SIMPONI [Suspect]
     Active Substance: GOLIMUMAB
     Indication: Rheumatoid arthritis
     Dosage: 500.0 MG
     Route: 058
  86. SIMPONI [Suspect]
     Active Substance: GOLIMUMAB
     Dosage: 50.0 MG
     Route: 058
  87. SIMPONI [Suspect]
     Active Substance: GOLIMUMAB
     Dosage: UNK
     Route: 065
  88. SIMPONI [Suspect]
     Active Substance: GOLIMUMAB
     Dosage: 500.0 MG
     Route: 058
  89. SIMPONI [Suspect]
     Active Substance: GOLIMUMAB
     Dosage: UNK
     Route: 064
  90. SIMPONI [Suspect]
     Active Substance: GOLIMUMAB
     Dosage: 50.0 MG
     Route: 058
  91. SIMPONI [Suspect]
     Active Substance: GOLIMUMAB
     Dosage: 50.0 MG
     Route: 058
  92. SIMPONI [Suspect]
     Active Substance: GOLIMUMAB
     Dosage: UNK
     Route: 058
  93. SIMPONI [Suspect]
     Active Substance: GOLIMUMAB
     Dosage: UNKS (NOT OTHERWISE SPECIFIED)
     Route: 042
  94. SIMPONI [Suspect]
     Active Substance: GOLIMUMAB
     Route: 058
  95. SIMPONI [Suspect]
     Active Substance: GOLIMUMAB
     Route: 058
  96. PERIOGARD [Suspect]
     Active Substance: CHLORHEXIDINE GLUCONATE
     Indication: Product used for unknown indication
     Dosage: UNK
     Route: 065
  97. CHLORHEXIDINE GLUCONATE\ISOPROPYL ALCOHOL [Suspect]
     Active Substance: CHLORHEXIDINE GLUCONATE\ISOPROPYL ALCOHOL
     Indication: Product used for unknown indication
     Dosage: UNK
     Route: 065
  98. NICOTINAMIDE [Suspect]
     Active Substance: NIACINAMIDE
     Indication: Product used for unknown indication
     Dosage: UNK
     Route: 065
  99. CETIRIZINE HYDROCHLORIDE\PSEUDOEPHEDRINE HYDROCHLORIDE [Suspect]
     Active Substance: CETIRIZINE HYDROCHLORIDE\PSEUDOEPHEDRINE HYDROCHLORIDE
     Indication: Product used for unknown indication
     Dosage: 10 MG, QD
     Route: 048
  100. CETIRIZINE HYDROCHLORIDE\PSEUDOEPHEDRINE HYDROCHLORIDE [Suspect]
     Active Substance: CETIRIZINE HYDROCHLORIDE\PSEUDOEPHEDRINE HYDROCHLORIDE
     Indication: Rheumatoid arthritis
     Dosage: 25.0 MG
     Route: 048
  101. CETIRIZINE HYDROCHLORIDE\PSEUDOEPHEDRINE HYDROCHLORIDE [Suspect]
     Active Substance: CETIRIZINE HYDROCHLORIDE\PSEUDOEPHEDRINE HYDROCHLORIDE
     Dosage: UNK
     Route: 067
  102. CIMZIA [Suspect]
     Active Substance: CERTOLIZUMAB PEGOL
     Indication: Rheumatoid arthritis
     Dosage: 400.0 MG
     Route: 058
  103. CIMZIA [Suspect]
     Active Substance: CERTOLIZUMAB PEGOL
     Indication: Product used for unknown indication
     Dosage: 400.0 MG
     Route: 064
  104. SULFASALAZINE [Suspect]
     Active Substance: SULFASALAZINE
     Indication: Product used for unknown indication
     Dosage: 1000.0 MG
     Route: 048
  105. SULFASALAZINE [Suspect]
     Active Substance: SULFASALAZINE
     Indication: Rheumatoid arthritis
     Dosage: 500.0 MG
     Route: 048
  106. SULFASALAZINE [Suspect]
     Active Substance: SULFASALAZINE
     Dosage: 2 G
     Route: 048
  107. SULFASALAZINE [Suspect]
     Active Substance: SULFASALAZINE
     Dosage: 500 MG
     Route: 064
  108. SULFASALAZINE [Suspect]
     Active Substance: SULFASALAZINE
     Dosage: 4.0 MG, QD
     Route: 048
  109. SULFASALAZINE [Suspect]
     Active Substance: SULFASALAZINE
     Dosage: 500.0 MG, QD
     Route: 065
  110. SULFASALAZINE [Suspect]
     Active Substance: SULFASALAZINE
     Dosage: 500 MG
     Route: 065
  111. SULFASALAZINE [Suspect]
     Active Substance: SULFASALAZINE
     Dosage: UNK, QD
     Route: 048
  112. SULFASALAZINE [Suspect]
     Active Substance: SULFASALAZINE
     Dosage: 500.0 MG, QD
     Route: 048
  113. SULFASALAZINE [Suspect]
     Active Substance: SULFASALAZINE
     Dosage: 1.0 G, QD
     Route: 048
  114. SULFASALAZINE [Suspect]
     Active Substance: SULFASALAZINE
     Dosage: UNK
     Route: 048
  115. SULFASALAZINE [Suspect]
     Active Substance: SULFASALAZINE
     Dosage: UNK
     Route: 065
  116. SULFASALAZINE [Suspect]
     Active Substance: SULFASALAZINE
     Dosage: 500 MG
     Route: 058
  117. SULFASALAZINE [Suspect]
     Active Substance: SULFASALAZINE
     Dosage: 2.0 MG
     Route: 065
  118. SULFASALAZINE [Suspect]
     Active Substance: SULFASALAZINE
     Dosage: UNK
     Route: 048
  119. SULFASALAZINE [Suspect]
     Active Substance: SULFASALAZINE
     Dosage: 2000 MG
     Route: 065
  120. SULFASALAZINE [Suspect]
     Active Substance: SULFASALAZINE
     Dosage: 1000.0 MG, QD
     Route: 048
  121. SULFASALAZINE [Suspect]
     Active Substance: SULFASALAZINE
     Dosage: 2.0 G, QD
     Route: 048
  122. SULFASALAZINE [Suspect]
     Active Substance: SULFASALAZINE
     Dosage: 2000 MG
     Route: 048
  123. SULFASALAZINE [Suspect]
     Active Substance: SULFASALAZINE
     Dosage: 1 MG
     Route: 048
  124. SULFASALAZINE [Suspect]
     Active Substance: SULFASALAZINE
     Dosage: 1 MG
     Route: 065
  125. SULFASALAZINE [Suspect]
     Active Substance: SULFASALAZINE
     Dosage: 4.0 MG, QD
     Route: 058
  126. SULFASALAZINE [Suspect]
     Active Substance: SULFASALAZINE
     Dosage: UNK, QD
     Route: 065
  127. SULFASALAZINE [Suspect]
     Active Substance: SULFASALAZINE
     Route: 048
  128. SULFASALAZINE [Suspect]
     Active Substance: SULFASALAZINE
     Route: 058
  129. SULFASALAZINE [Suspect]
     Active Substance: SULFASALAZINE
     Route: 048
  130. SULFASALAZINE [Suspect]
     Active Substance: SULFASALAZINE
     Route: 048
  131. ACTEMRA [Suspect]
     Active Substance: TOCILIZUMAB
     Indication: Rheumatoid arthritis
     Dosage: UNK
     Route: 064
  132. ACTEMRA [Suspect]
     Active Substance: TOCILIZUMAB
     Dosage: UNK
     Route: 058
  133. ACTEMRA [Suspect]
     Active Substance: TOCILIZUMAB
     Dosage: UNK,(NOT OTHERWISE SPECIFIED)
     Route: 042
  134. ACTEMRA [Suspect]
     Active Substance: TOCILIZUMAB
     Dosage: 728.0 MG
     Route: 042
  135. ACTEMRA [Suspect]
     Active Substance: TOCILIZUMAB
     Dosage: UNK
     Route: 016
  136. ACTEMRA [Suspect]
     Active Substance: TOCILIZUMAB
     Dosage: 20.0 MG
     Route: 048
  137. ACTEMRA [Suspect]
     Active Substance: TOCILIZUMAB
     Dosage: UNK
     Route: 061
  138. ACTEMRA [Suspect]
     Active Substance: TOCILIZUMAB
     Dosage: UNK,S (NOT OTHERWISE SPECIFIED)
     Route: 042
  139. ACTEMRA [Suspect]
     Active Substance: TOCILIZUMAB
     Dosage: 2912.0 MG
     Route: 065
  140. ACTEMRA [Suspect]
     Active Substance: TOCILIZUMAB
     Dosage: UNK,S (NOT OTHERWISE SPECIFIED)
     Route: 042
  141. PREDNISONE [Suspect]
     Active Substance: PREDNISONE
     Indication: Rheumatoid arthritis
     Dosage: 40.0 MG
     Route: 048
  142. PREDNISONE [Suspect]
     Active Substance: PREDNISONE
     Indication: Condition aggravated
     Dosage: 25.0 MG
     Route: 048
  143. PREDNISONE [Suspect]
     Active Substance: PREDNISONE
     Indication: Product used for unknown indication
     Dosage: 40.0 MG
     Route: 064
  144. PREDNISONE [Suspect]
     Active Substance: PREDNISONE
     Dosage: 40.0 MG
     Route: 065
  145. PREDNISONE [Suspect]
     Active Substance: PREDNISONE
     Dosage: 7.5 MG
     Route: 048
  146. PREDNISONE [Suspect]
     Active Substance: PREDNISONE
     Dosage: 10.0 MG
     Route: 065
  147. PREDNISONE [Suspect]
     Active Substance: PREDNISONE
     Dosage: UNK
     Route: 016
  148. PREDNISONE [Suspect]
     Active Substance: PREDNISONE
     Dosage: 25.0 MG
     Route: 061
  149. PREDNISONE [Suspect]
     Active Substance: PREDNISONE
     Dosage: UNK
     Route: 048
  150. PREDNISONE [Suspect]
     Active Substance: PREDNISONE
     Dosage: UNKS (NOT OTHERWISE SPECIFIED)
     Route: 042
  151. PREDNISONE [Suspect]
     Active Substance: PREDNISONE
     Dosage: 25.0 MG
     Route: 064
  152. PREDNISONE [Suspect]
     Active Substance: PREDNISONE
     Dosage: 5.0 MG
     Route: 065
  153. PREDNISONE [Suspect]
     Active Substance: PREDNISONE
     Route: 048
  154. PREDNISONE [Suspect]
     Active Substance: PREDNISONE
     Route: 048
  155. PREDNISONE [Suspect]
     Active Substance: PREDNISONE
  156. PREDNISONE [Suspect]
     Active Substance: PREDNISONE
     Route: 065
  157. PREDNISONE [Suspect]
     Active Substance: PREDNISONE
     Route: 065
  158. PREDNISONE [Suspect]
     Active Substance: PREDNISONE
     Route: 048
  159. PREDNISONE [Suspect]
     Active Substance: PREDNISONE
     Route: 061
  160. AMINOSALICYLATE CALCIUM [Suspect]
     Active Substance: AMINOSALICYLATE CALCIUM
     Indication: Product used for unknown indication
     Dosage: UNK
     Route: 065
  161. METHYLPREDNISOLONE SODIUM SUCCINATE [Suspect]
     Active Substance: METHYLPREDNISOLONE SODIUM SUCCINATE
     Indication: Product used for unknown indication
     Dosage: UNK
     Route: 064
  162. PREDNISONE [Suspect]
     Active Substance: PREDNISONE
     Indication: Product used for unknown indication
     Dosage: 40.0 MG
     Route: 048
  163. PREDNISONE [Suspect]
     Active Substance: PREDNISONE
     Dosage: 5.0 MG
     Route: 048
  164. PREDNISONE [Suspect]
     Active Substance: PREDNISONE
     Dosage: 1.0 MG
     Route: 048
  165. PREDNISONE [Suspect]
     Active Substance: PREDNISONE
     Dosage: UNK
     Route: 064
  166. PHTHALYLSULFATHIAZOLE [Suspect]
     Active Substance: PHTHALYLSULFATHIAZOLE
     Indication: Product used for unknown indication
     Dosage: 400.0 MG, QD
     Route: 065
  167. PHTHALYLSULFATHIAZOLE [Suspect]
     Active Substance: PHTHALYLSULFATHIAZOLE
     Indication: Rheumatoid arthritis
     Dosage: 500 MG, QD
     Route: 048
  168. PHTHALYLSULFATHIAZOLE [Suspect]
     Active Substance: PHTHALYLSULFATHIAZOLE
     Dosage: 400.0 MG
     Route: 064
  169. PHTHALYLSULFATHIAZOLE [Suspect]
     Active Substance: PHTHALYLSULFATHIAZOLE
     Dosage: 1000 MG, QD
     Route: 016
  170. PHTHALYLSULFATHIAZOLE [Suspect]
     Active Substance: PHTHALYLSULFATHIAZOLE
     Dosage: UNK
     Route: 064
  171. PHTHALYLSULFATHIAZOLE [Suspect]
     Active Substance: PHTHALYLSULFATHIAZOLE
     Dosage: UNK
     Route: 016
  172. ASCORBIC ACID [Suspect]
     Active Substance: ASCORBIC ACID
     Indication: Product used for unknown indication
     Dosage: UNK
     Route: 048
  173. DESOXIMETASONE [Suspect]
     Active Substance: DESOXIMETASONE
     Indication: Rheumatoid arthritis
     Dosage: UNK
     Route: 064
  174. DESOXIMETASONE [Suspect]
     Active Substance: DESOXIMETASONE
     Indication: Product used for unknown indication
     Dosage: UNK
     Route: 067
  175. DESOXIMETASONE [Suspect]
     Active Substance: DESOXIMETASONE
     Dosage: UNK
     Route: 067
  176. DESOXIMETASONE [Suspect]
     Active Substance: DESOXIMETASONE
     Dosage: 25.0 MG
     Route: 003
  177. DESOXIMETASONE [Suspect]
     Active Substance: DESOXIMETASONE
     Dosage: UNK
     Route: 048
  178. DESOXIMETASONE [Suspect]
     Active Substance: DESOXIMETASONE
     Dosage: UNK
     Route: 003
  179. DESOXIMETASONE [Suspect]
     Active Substance: DESOXIMETASONE
     Dosage: UNK
     Route: 058
  180. DESOXIMETASONE [Suspect]
     Active Substance: DESOXIMETASONE
     Dosage: UNK
     Route: 048
  181. DESOXIMETASONE [Suspect]
     Active Substance: DESOXIMETASONE
     Dosage: 25.0 MG, WE
     Route: 061
  182. DESOXIMETASONE [Suspect]
     Active Substance: DESOXIMETASONE
     Dosage: 25 MG, QD
     Route: 048
  183. DESOXIMETASONE [Suspect]
     Active Substance: DESOXIMETASONE
     Dosage: UNK
     Route: 003
  184. KEVZARA [Suspect]
     Active Substance: SARILUMAB
     Indication: Product used for unknown indication
     Dosage: UNK
     Route: 064
  185. KEVZARA [Suspect]
     Active Substance: SARILUMAB
     Indication: Rheumatoid arthritis
  186. BETAMETHASONE VALERATE [Suspect]
     Active Substance: BETAMETHASONE VALERATE
     Indication: Rheumatoid arthritis
     Dosage: 25 MG, DERMA REPAIR HEAL LOTION
     Route: 065
  187. BETAMETHASONE VALERATE [Suspect]
     Active Substance: BETAMETHASONE VALERATE
     Dosage: OROPHARYNGEAL USE
     Route: 049
  188. PSEUDOEPHEDRINE HYDROCHLORIDE [Suspect]
     Active Substance: PSEUDOEPHEDRINE HYDROCHLORIDE
     Indication: Rheumatoid arthritis
     Dosage: UNK
     Route: 048
  189. PSEUDOEPHEDRINE HYDROCHLORIDE [Suspect]
     Active Substance: PSEUDOEPHEDRINE HYDROCHLORIDE
     Indication: Product used for unknown indication
     Dosage: UNK
     Route: 065
  190. PSEUDOEPHEDRINE HYDROCHLORIDE [Suspect]
     Active Substance: PSEUDOEPHEDRINE HYDROCHLORIDE
     Dosage: W/TRI/00005601
     Route: 048
  191. PSEUDOEPHEDRINE HYDROCHLORIDE [Suspect]
     Active Substance: PSEUDOEPHEDRINE HYDROCHLORIDE
     Dosage: UNK
     Route: 065
  192. PSEUDOEPHEDRINE HYDROCHLORIDE [Suspect]
     Active Substance: PSEUDOEPHEDRINE HYDROCHLORIDE
     Dosage: UNK
     Route: 064
  193. MORPHINE [Suspect]
     Active Substance: MORPHINE
     Indication: Product used for unknown indication
     Dosage: UNK
     Route: 065
  194. CETIRIZINE HYDROCHLORIDE\PSEUDOEPHEDRINE HYDROCHLORIDE [Suspect]
     Active Substance: CETIRIZINE HYDROCHLORIDE\PSEUDOEPHEDRINE HYDROCHLORIDE
     Indication: Rheumatoid arthritis
     Dosage: UNK
     Route: 067
  195. CETIRIZINE HYDROCHLORIDE\PSEUDOEPHEDRINE HYDROCHLORIDE [Suspect]
     Active Substance: CETIRIZINE HYDROCHLORIDE\PSEUDOEPHEDRINE HYDROCHLORIDE
     Indication: Product used for unknown indication
     Dosage: 25.0 MG
     Route: 065
  196. CETIRIZINE HYDROCHLORIDE\PSEUDOEPHEDRINE HYDROCHLORIDE [Suspect]
     Active Substance: CETIRIZINE HYDROCHLORIDE\PSEUDOEPHEDRINE HYDROCHLORIDE
     Dosage: 10.0 MG, QD
     Route: 048
  197. ORENCIA [Suspect]
     Active Substance: ABATACEPT
     Indication: Product used for unknown indication
     Dosage: 17.8 MG, QD
     Route: 058
  198. ORENCIA [Suspect]
     Active Substance: ABATACEPT
     Indication: Rheumatoid arthritis
     Dosage: 3.0 MG, BID
     Route: 048
  199. ORENCIA [Suspect]
     Active Substance: ABATACEPT
     Dosage: UNKS (NOT OTHERWISE SPECIFIED
     Route: 042
  200. ORENCIA [Suspect]
     Active Substance: ABATACEPT
     Dosage: 3.0 MG, BID
     Route: 048
  201. ORENCIA [Suspect]
     Active Substance: ABATACEPT
     Dosage: UNK
     Route: 064
  202. ORENCIA [Suspect]
     Active Substance: ABATACEPT
     Dosage: 25.0 MG
     Route: 058
  203. ORENCIA [Suspect]
     Active Substance: ABATACEPT
     Dosage: 125.0 MG, QW
     Route: 058
  204. ORENCIA [Suspect]
     Active Substance: ABATACEPT
     Dosage: UNK
     Route: 058
  205. ORENCIA [Suspect]
     Active Substance: ABATACEPT
     Route: 058
  206. ORENCIA [Suspect]
     Active Substance: ABATACEPT
     Route: 042
  207. ORENCIA [Suspect]
     Active Substance: ABATACEPT
     Route: 058
  208. ORENCIA [Suspect]
     Active Substance: ABATACEPT
     Route: 058
  209. ORENCIA [Suspect]
     Active Substance: ABATACEPT
     Route: 058
  210. ORENCIA [Suspect]
     Active Substance: ABATACEPT
     Route: 058
  211. FOLIC ACID [Suspect]
     Active Substance: FOLIC ACID
     Indication: Product used for unknown indication
     Dosage: 1.0 MG
     Route: 048
  212. FOLIC ACID [Suspect]
     Active Substance: FOLIC ACID
     Indication: Rheumatoid arthritis
     Dosage: UNK
     Route: 065
  213. FOLIC ACID [Suspect]
     Active Substance: FOLIC ACID
     Dosage: UNK
     Route: 065
  214. FOLIC ACID [Suspect]
     Active Substance: FOLIC ACID
     Dosage: 1.0 MG
     Route: 058
  215. FOLIC ACID [Suspect]
     Active Substance: FOLIC ACID
     Dosage: UNK
     Route: 065
  216. FOLIC ACID [Suspect]
     Active Substance: FOLIC ACID
     Dosage: UNK
     Route: 065
  217. FOLIC ACID [Suspect]
     Active Substance: FOLIC ACID
     Dosage: UNK
     Route: 065
  218. FOLIC ACID [Suspect]
     Active Substance: FOLIC ACID
     Dosage: UNK
     Route: 065
  219. FOLIC ACID [Suspect]
     Active Substance: FOLIC ACID
     Dosage: 25.0 MG
     Route: 048
  220. FOLIC ACID [Suspect]
     Active Substance: FOLIC ACID
     Dosage: UNK
     Route: 065
  221. FOLIC ACID [Suspect]
     Active Substance: FOLIC ACID
     Dosage: UNK
     Route: 065
  222. FOLIC ACID [Suspect]
     Active Substance: FOLIC ACID
     Dosage: 25.0 MG
     Route: 048
  223. FOLIC ACID [Suspect]
     Active Substance: FOLIC ACID
     Dosage: UNK
     Route: 065
  224. FOLIC ACID [Suspect]
     Active Substance: FOLIC ACID
     Dosage: 500.0 MG
     Route: 048
  225. FOLIC ACID [Suspect]
     Active Substance: FOLIC ACID
     Dosage: UNK
     Route: 065
  226. CORTISONE ACETATE [Suspect]
     Active Substance: CORTISONE ACETATE
     Indication: Rheumatoid arthritis
     Dosage: 25.0 MG
     Route: 064
  227. CORTISONE ACETATE [Suspect]
     Active Substance: CORTISONE ACETATE
     Indication: Product used for unknown indication
     Dosage: UNK
     Route: 048
  228. CORTISONE ACETATE [Suspect]
     Active Substance: CORTISONE ACETATE
     Dosage: 25.0 MG
     Route: 061
  229. CORTISONE ACETATE [Suspect]
     Active Substance: CORTISONE ACETATE
     Dosage: 3.0 MG
     Route: 048
  230. CORTISONE ACETATE [Suspect]
     Active Substance: CORTISONE ACETATE
     Dosage: 20 MG
     Route: 061
  231. PREDNISONE [Suspect]
     Active Substance: PREDNISONE
     Indication: Product used for unknown indication
     Dosage: UNK
     Route: 064
  232. PREDNISONE [Suspect]
     Active Substance: PREDNISONE
     Indication: Rheumatoid arthritis
     Dosage: UNK
     Route: 048
  233. TUMS ULTRA [Suspect]
     Active Substance: CALCIUM CARBONATE
     Indication: Product used for unknown indication
     Dosage: UNK
     Route: 065
  234. TUMS ULTRA [Suspect]
     Active Substance: CALCIUM CARBONATE
     Dosage: UNK
     Route: 016
  235. TUMS ULTRA [Suspect]
     Active Substance: CALCIUM CARBONATE
     Dosage: 110 MG
     Route: 065
  236. AZATHIOPRINE [Suspect]
     Active Substance: AZATHIOPRINE
     Indication: Product used for unknown indication
     Dosage: UNK
     Route: 065
  237. ADVIL [Suspect]
     Active Substance: IBUPROFEN\IBUPROFEN SODIUM
     Indication: Product used for unknown indication
     Dosage: UNK
     Route: 065
  238. CHOLECALCIFEROL [Suspect]
     Active Substance: CHOLECALCIFEROL
     Indication: Product used for unknown indication
     Dosage: 1000 IU
     Route: 065
  239. CHOLECALCIFEROL [Suspect]
     Active Substance: CHOLECALCIFEROL
     Route: 065
  240. HYDROXYCHLOROQUINE SULFATE [Suspect]
     Active Substance: HYDROXYCHLOROQUINE SULFATE
     Indication: Rheumatoid arthritis
     Dosage: 40.0 MG
     Route: 065
  241. HYDROXYCHLOROQUINE SULFATE [Suspect]
     Active Substance: HYDROXYCHLOROQUINE SULFATE
     Indication: Product used for unknown indication
     Dosage: 420.0 MG, QD
     Route: 065
  242. HYDROXYCHLOROQUINE SULFATE [Suspect]
     Active Substance: HYDROXYCHLOROQUINE SULFATE
     Dosage: 4.0 MG
     Route: 065
  243. HYDROXYCHLOROQUINE SULFATE [Suspect]
     Active Substance: HYDROXYCHLOROQUINE SULFATE
     Dosage: 5.0 MG
     Route: 048
  244. HYDROXYCHLOROQUINE [Suspect]
     Active Substance: HYDROXYCHLOROQUINE
     Indication: Product used for unknown indication
     Dosage: 400.0 MG
     Route: 048
  245. HYDROXYCHLOROQUINE [Suspect]
     Active Substance: HYDROXYCHLOROQUINE
     Indication: Rheumatoid arthritis
     Dosage: 400.0 MG
     Route: 064
  246. HYDROXYCHLOROQUINE [Suspect]
     Active Substance: HYDROXYCHLOROQUINE
     Dosage: UNK
     Route: 005
  247. FLUMETHASONE PIVALATE [Suspect]
     Active Substance: FLUMETHASONE PIVALATE
     Indication: Product used for unknown indication
     Dosage: UNK
     Route: 058
  248. FLUMETHASONE PIVALATE [Suspect]
     Active Substance: FLUMETHASONE PIVALATE
     Indication: Rheumatoid arthritis
  249. TOCILIZUMAB [Suspect]
     Active Substance: TOCILIZUMAB
     Indication: Rheumatoid arthritis
     Dosage: UNK
     Route: 042
  250. TOCILIZUMAB [Suspect]
     Active Substance: TOCILIZUMAB
     Indication: Product used for unknown indication
     Dosage: UNK
     Route: 064
  251. TOCILIZUMAB [Suspect]
     Active Substance: TOCILIZUMAB
     Dosage: UNK
     Route: 058
  252. TOCILIZUMAB [Suspect]
     Active Substance: TOCILIZUMAB
     Dosage: 8.0 MG
     Route: 042
  253. TOCILIZUMAB [Suspect]
     Active Substance: TOCILIZUMAB
     Dosage: UNK
     Route: 061
  254. COSENTYX [Suspect]
     Active Substance: SECUKINUMAB
     Indication: Product used for unknown indication
     Dosage: UNK
     Route: 005
  255. COSENTYX [Suspect]
     Active Substance: SECUKINUMAB
     Indication: Rheumatoid arthritis
  256. DICLOFENAC SODIUM [Suspect]
     Active Substance: DICLOFENAC SODIUM
     Indication: Product used for unknown indication
     Dosage: 50 MG, QD
     Route: 064
  257. DICLOFENAC SODIUM [Suspect]
     Active Substance: DICLOFENAC SODIUM
     Dosage: 50 MG, QD
     Route: 064
  258. ADALIMUMAB [Suspect]
     Active Substance: ADALIMUMAB
     Indication: Product used for unknown indication
     Dosage: 40.0 MG
     Route: 058
  259. ADALIMUMAB [Suspect]
     Active Substance: ADALIMUMAB
     Dosage: UNK
     Route: 064
  260. ALENDRONATE SODIUM [Suspect]
     Active Substance: ALENDRONATE SODIUM
     Indication: Rheumatoid arthritis
     Dosage: 40.0 MG
     Route: 058
  261. ALENDRONATE SODIUM [Suspect]
     Active Substance: ALENDRONATE SODIUM
     Indication: Product used for unknown indication
     Dosage: UNK
     Route: 016
  262. ALENDRONATE SODIUM [Suspect]
     Active Substance: ALENDRONATE SODIUM
     Dosage: UNK
     Route: 064
  263. ALENDRONATE SODIUM [Suspect]
     Active Substance: ALENDRONATE SODIUM
     Dosage: 1.0 MG
     Route: 048
  264. CALCIUM GLUBIONATE [Suspect]
     Active Substance: CALCIUM GLUBIONATE
     Indication: Product used for unknown indication
     Dosage: 110.0 MG
  265. CALCIUM GLUBIONATE [Suspect]
     Active Substance: CALCIUM GLUBIONATE
     Dosage: UNK
     Route: 016
  266. NEOMYCIN [Suspect]
     Active Substance: NEOMYCIN
     Indication: Product used for unknown indication
     Dosage: UNK
     Route: 048
  267. SULFAMETHOXAZOLE [Suspect]
     Active Substance: SULFAMETHOXAZOLE
     Indication: Product used for unknown indication
     Route: 065
  268. MINOCYCLINE HYDROCHLORIDE [Suspect]
     Active Substance: MINOCYCLINE HYDROCHLORIDE
     Indication: Rheumatoid arthritis
     Route: 065
  269. ERELZI [Suspect]
     Active Substance: ETANERCEPT-SZZS
     Indication: Rheumatoid arthritis
     Route: 058
  270. ERELZI [Suspect]
     Active Substance: ETANERCEPT-SZZS
     Route: 058
  271. ERELZI [Suspect]
     Active Substance: ETANERCEPT-SZZS
     Route: 065
  272. CHLORHEXIDINE ACETATE [Suspect]
     Active Substance: CHLORHEXIDINE ACETATE
     Indication: Product used for unknown indication
     Route: 061
  273. COSENTYX [Concomitant]
     Active Substance: SECUKINUMAB
     Indication: Product used for unknown indication

REACTIONS (137)
  - Pneumonia [Fatal]
  - Weight decreased [Fatal]
  - Malaise [Fatal]
  - Urticaria [Fatal]
  - General physical health deterioration [Fatal]
  - Night sweats [Fatal]
  - Wound infection [Fatal]
  - Knee arthroplasty [Fatal]
  - X-ray abnormal [Fatal]
  - Memory impairment [Fatal]
  - Sciatica [Fatal]
  - Arthralgia [Fatal]
  - Prescribed underdose [Fatal]
  - Lung disorder [Fatal]
  - Walking aid user [Fatal]
  - Psoriatic arthropathy [Fatal]
  - Spondylitis [Fatal]
  - Liver function test increased [Fatal]
  - Upper respiratory tract infection [Fatal]
  - Obesity [Fatal]
  - Respiratory disorder [Fatal]
  - Muscle spasticity [Fatal]
  - Tachycardia [Fatal]
  - Pericarditis [Fatal]
  - Sinusitis [Fatal]
  - Liver injury [Fatal]
  - Rheumatoid factor positive [Fatal]
  - Joint range of motion decreased [Fatal]
  - Pyrexia [Fatal]
  - Nausea [Fatal]
  - Retinitis [Fatal]
  - Systemic lupus erythematosus [Fatal]
  - Spinal fusion surgery [Fatal]
  - Psoriasis [Fatal]
  - Therapeutic response decreased [Fatal]
  - Muscular weakness [Fatal]
  - Red blood cell sedimentation rate increased [Fatal]
  - Migraine [Fatal]
  - Wheezing [Fatal]
  - Anti-cyclic citrullinated peptide antibody positive [Fatal]
  - Vomiting [Fatal]
  - Muscle injury [Fatal]
  - Lupus vulgaris [Fatal]
  - Chest pain [Fatal]
  - Gait disturbance [Fatal]
  - Asthma [Fatal]
  - Arthropathy [Fatal]
  - Lip dry [Fatal]
  - Deep vein thrombosis postoperative [Fatal]
  - Muscle spasms [Fatal]
  - Inflammation [Fatal]
  - Asthenia [Fatal]
  - Grip strength decreased [Fatal]
  - Infection [Fatal]
  - Swelling [Fatal]
  - Pain [Fatal]
  - Pemphigus [Fatal]
  - Weight increased [Fatal]
  - Rheumatic fever [Fatal]
  - Ill-defined disorder [Fatal]
  - Autoimmune disorder [Fatal]
  - C-reactive protein abnormal [Fatal]
  - Sleep disorder [Fatal]
  - Bursitis [Fatal]
  - Synovitis [Fatal]
  - Fatigue [Fatal]
  - Gastrointestinal disorder [Fatal]
  - Peripheral swelling [Fatal]
  - Glossodynia [Fatal]
  - Lower limb fracture [Fatal]
  - Mobility decreased [Fatal]
  - Hypercholesterolaemia [Fatal]
  - Ear pain [Fatal]
  - Visual impairment [Fatal]
  - Osteoarthritis [Fatal]
  - Foot deformity [Fatal]
  - Duodenal ulcer perforation [Fatal]
  - Adjustment disorder with depressed mood [Fatal]
  - Anti-cyclic citrullinated peptide antibody [Fatal]
  - Lower respiratory tract infection [Fatal]
  - Insomnia [Fatal]
  - Pulmonary fibrosis [Fatal]
  - Breast cancer stage II [Fatal]
  - Exostosis [Fatal]
  - Hepatic cirrhosis [Fatal]
  - Dyspnoea [Fatal]
  - Swollen joint count increased [Fatal]
  - Musculoskeletal pain [Fatal]
  - Sleep disorder due to general medical condition, insomnia type [Fatal]
  - Joint dislocation [Fatal]
  - Decreased appetite [Fatal]
  - Hypertension [Fatal]
  - Hip arthroplasty [Fatal]
  - Joint stiffness [Fatal]
  - Discomfort [Fatal]
  - Fibromyalgia [Fatal]
  - Facet joint syndrome [Fatal]
  - Infusion related reaction [Fatal]
  - Abdominal discomfort [Fatal]
  - Oedema peripheral [Fatal]
  - Peripheral venous disease [Fatal]
  - Liver disorder [Fatal]
  - Paraesthesia [Fatal]
  - Stomatitis [Fatal]
  - Depression [Fatal]
  - Seronegative arthritis [Fatal]
  - Hypoaesthesia [Fatal]
  - Bone erosion [Fatal]
  - Ear infection [Fatal]
  - Abdominal pain [Fatal]
  - Pain in extremity [Fatal]
  - Hand deformity [Fatal]
  - Rheumatoid arthritis [Fatal]
  - Oedema [Fatal]
  - Contusion [Fatal]
  - Diarrhoea [Fatal]
  - Blood cholesterol increased [Fatal]
  - Dry mouth [Fatal]
  - Nasopharyngitis [Fatal]
  - Delirium [Fatal]
  - Dislocation of vertebra [Fatal]
  - Musculoskeletal stiffness [Fatal]
  - Impaired healing [Fatal]
  - Blister [Fatal]
  - Lupus-like syndrome [Fatal]
  - Irritable bowel syndrome [Fatal]
  - Type 2 diabetes mellitus [Fatal]
  - Laryngitis [Fatal]
  - Pruritus [Fatal]
  - Osteoporosis [Fatal]
  - Joint swelling [Fatal]
  - Drug hypersensitivity [Fatal]
  - Road traffic accident [Fatal]
  - Headache [Fatal]
  - Injury [Fatal]
  - Rash [Fatal]
  - Wound [Fatal]
